FAERS Safety Report 14828062 (Version 1)
Quarter: 2018Q2

REPORT INFORMATION
  Report Type: Spontaneous
  Country: US (occurrence: US)
  Receive Date: 20180406
  Receipt Date: 20180406
  Transmission Date: 20180711
  Serious: No
  Sender: FDA-Public Use
  Company Number: None

PATIENT
  Age: 50 Year
  Sex: Female
  Weight: 74.6 kg

DRUGS (2)
  1. ESTRADIOL 0.05MG/24H WEEKLY PATCH [Concomitant]
     Dates: start: 20171130
  2. MAVYRET [Suspect]
     Active Substance: GLECAPREVIR\PIBRENTASVIR
     Indication: CHRONIC HEPATITIS C
     Route: 048
     Dates: start: 20180125, end: 20180322

REACTIONS (3)
  - Night sweats [None]
  - Paradoxical drug reaction [None]
  - Hot flush [None]

NARRATIVE: CASE EVENT DATE: 20180128
